FAERS Safety Report 4887819-8 (Version None)
Quarter: 2006Q1

REPORT INFORMATION
  Report Type: 
  Country: None (occurrence: None)
  Receive Date: 20060123
  Receipt Date: 20050125
  Transmission Date: 20060701
  Serious: Yes (Other)
  Sender: FDA-Public Use
  Company Number: US-MERCK-0501USA03966

PATIENT
  Sex: Male

DRUGS (4)
  1. VIOXX [Suspect]
     Indication: PAIN
     Route: 048
     Dates: start: 20021228, end: 20031101
  2. VIOXX [Suspect]
     Route: 048
     Dates: start: 20021223, end: 20021227
  3. VIOXX [Suspect]
     Indication: INFLAMMATION
     Route: 048
     Dates: start: 20021228, end: 20031101
  4. VIOXX [Suspect]
     Route: 048
     Dates: start: 20021223, end: 20021227

REACTIONS (12)
  - ABDOMINAL PAIN UPPER [None]
  - CELLULITIS [None]
  - CERVICOBRACHIAL SYNDROME [None]
  - CONSTIPATION [None]
  - DRUG INEFFECTIVE [None]
  - HIDRADENITIS [None]
  - HYPERTENSION [None]
  - MYOCARDIAL INFARCTION [None]
  - PEPTIC ULCER [None]
  - PERIORBITAL HAEMATOMA [None]
  - SPINAL DISORDER [None]
  - VISUAL DISTURBANCE [None]
